FAERS Safety Report 17871915 (Version 1)
Quarter: 2020Q2

REPORT INFORMATION
  Report Type: Spontaneous
  Country: US (occurrence: US)
  Receive Date: 20200608
  Receipt Date: 20200608
  Transmission Date: 20200714
  Serious: No
  Sender: FDA-Public Use
  Company Number: US-BIODELIVERY SCIENCES INTERNATIONAL-2019BDSI0656

PATIENT
  Sex: Female

DRUGS (2)
  1. BUPRENORPHINE/NALOXONE [Suspect]
     Active Substance: BUPRENORPHINE\NALOXONE
     Indication: DRUG DEPENDENCE
     Dosage: 6.3 MG/1 MG; 2 FILMS ON EITHER SIDE OF THE CHEEK, ONCE A DAY
     Route: 002
     Dates: start: 20190722, end: 20190729
  2. BUPRENORPHINE/NALOXONE [Suspect]
     Active Substance: BUPRENORPHINE\NALOXONE
     Dosage: 4.2 MG/0.7 MG; 2 FILMS ON EITHER SIDE OF THE CHEEK, ONCE A DAY
     Route: 002
     Dates: start: 20190730

REACTIONS (2)
  - Wrong technique in product usage process [Recovered/Resolved]
  - Product solubility abnormal [Unknown]

NARRATIVE: CASE EVENT DATE: 201907
